FAERS Safety Report 21260405 (Version 1)
Quarter: 2022Q3

REPORT INFORMATION
  Report Type: Report from Study
  Country: BR (occurrence: BR)
  Receive Date: 20220826
  Receipt Date: 20220826
  Transmission Date: 20221026
  Serious: Yes (Other)
  Sender: FDA-Public Use
  Company Number: BR-JNJFOC-20220811538

PATIENT
  Age: 4 Decade
  Sex: Female
  Weight: 83 kg

DRUGS (1)
  1. REMICADE [Suspect]
     Active Substance: INFLIXIMAB
     Indication: Ankylosing spondylitis
     Dosage: 8 OR 9 AMPOULES
     Route: 041
     Dates: start: 20220615

REACTIONS (7)
  - Syncope [Unknown]
  - Hypersensitivity [Unknown]
  - Malaise [Unknown]
  - Infusion related reaction [Recovered/Resolved]
  - Diarrhoea [Unknown]
  - Headache [Unknown]
  - Nausea [Unknown]
